FAERS Safety Report 14187710 (Version 3)
Quarter: 2018Q2

REPORT INFORMATION
  Report Type: Spontaneous
  Country: JP (occurrence: JP)
  Receive Date: 20171114
  Receipt Date: 20180417
  Transmission Date: 20180711
  Serious: Yes (Death, Other)
  Sender: FDA-Public Use
  Company Number: JP-JNJFOC-20171113662

PATIENT
  Age: 56 Year
  Sex: Female

DRUGS (1)
  1. DOXIL [Suspect]
     Active Substance: DOXORUBICIN HYDROCHLORIDE
     Indication: OVARIAN CANCER
     Dosage: TOTAL VOLUME OVER 400MG/M2
     Route: 042

REACTIONS (2)
  - Leukoplakia oral [Unknown]
  - Death [Fatal]
